FAERS Safety Report 9268265 (Version 1)
Quarter: 2013Q2

REPORT INFORMATION
  Report Type: Spontaneous
  Country: US (occurrence: US)
  Receive Date: 20130502
  Receipt Date: 20130502
  Transmission Date: 20140414
  Serious: Yes (Hospitalization)
  Sender: FDA-Public Use
  Company Number: US-ALEXION PHARMACEUTICALS INC.-A201202014

PATIENT
  Age: 21 Year
  Sex: Male
  Weight: 90.7 kg

DRUGS (2)
  1. SOLIRIS 300MG [Suspect]
     Indication: HAEMOLYTIC URAEMIC SYNDROME
     Dosage: UNK
     Route: 042
     Dates: start: 20121001
  2. ANTIHYPERTENSIVES [Concomitant]
     Indication: BLOOD PRESSURE
     Dosage: UNK

REACTIONS (1)
  - Platelet count decreased [Unknown]
